FAERS Safety Report 16037239 (Version 1)
Quarter: 2019Q1

REPORT INFORMATION
  Report Type: Spontaneous
  Country: US (occurrence: US)
  Receive Date: 20190305
  Receipt Date: 20190305
  Transmission Date: 20190418
  Serious: Yes (Other)
  Sender: FDA-Public Use
  Company Number: US-ELI_LILLY_AND_COMPANY-US201902013483

PATIENT
  Sex: Male

DRUGS (2)
  1. CIALIS [Suspect]
     Active Substance: TADALAFIL
     Dosage: PRN, USUALLY 1 TABLET
     Route: 048
     Dates: end: 2018
  2. CIALIS [Suspect]
     Active Substance: TADALAFIL
     Indication: ERECTILE DYSFUNCTION
     Dosage: PRN, USUALLY 1 TABLET
     Route: 048
     Dates: end: 2018

REACTIONS (4)
  - Drug ineffective [Recovered/Resolved]
  - Prostatic specific antigen increased [Unknown]
  - Prostate cancer [Unknown]
  - Erectile dysfunction [Recovered/Resolved]
